FAERS Safety Report 12079405 (Version 1)
Quarter: 2016Q1

REPORT INFORMATION
  Report Type: Spontaneous
  Country: IT (occurrence: IT)
  Receive Date: 20160216
  Receipt Date: 20160216
  Transmission Date: 20160526
  Serious: Yes (Hospitalization, Other)
  Sender: FDA-Public Use
  Company Number: IT-ELI_LILLY_AND_COMPANY-IT201602004957

PATIENT
  Age: 27 Year
  Sex: Male

DRUGS (2)
  1. ZIPRASIDONE. [Concomitant]
     Active Substance: ZIPRASIDONE
     Indication: PSYCHIATRIC SYMPTOM
     Dosage: 80 MG, QD
     Route: 065
  2. OLANZAPINE. [Suspect]
     Active Substance: OLANZAPINE
     Indication: PSYCHIATRIC SYMPTOM
     Dosage: 10 MG, QD
     Route: 065
     Dates: start: 2001, end: 2009

REACTIONS (5)
  - Hypercholesterolaemia [Unknown]
  - Therapeutic response decreased [Unknown]
  - Schizophrenia [Unknown]
  - Cerebral hypoperfusion [Unknown]
  - Weight increased [Unknown]
